FAERS Safety Report 4692919-1 (Version None)
Quarter: 2005Q2

REPORT INFORMATION
  Report Type: 
  Country: None (occurrence: None)
  Receive Date: 20050617
  Receipt Date: 20050207
  Transmission Date: 20051028
  Serious: Yes (Other)
  Sender: FDA-Public Use
  Company Number: PHEH2005US01737

PATIENT
  Age: 60 Year
  Sex: Female
  Weight: 91 kg

DRUGS (8)
  1. ZOMETA [Suspect]
     Indication: BREAST CANCER
     Dosage: 4 MG (UNSPECIFIED)
     Dates: start: 20040219, end: 20041203
  2. HERCEPTIN [Concomitant]
  3. TAXOTERE [Concomitant]
  4. DURAGESIC-100 [Concomitant]
  5. IBUPROFEN [Concomitant]
  6. TAGAMET [Concomitant]
  7. PROCHLORPERAZINE [Concomitant]
  8. FUROSEMIDE [Concomitant]

REACTIONS (1)
  - OSTEONECROSIS [None]
